FAERS Safety Report 7047735-2 (Version None)
Quarter: 2010Q4

REPORT INFORMATION
  Report Type: 
  Country: None (occurrence: None)
  Receive Date: 20101015
  Receipt Date: 20101008
  Transmission Date: 20110411
  Serious: Yes (Other)
  Sender: FDA-Public Use
  Company Number: GB-ALLERGAN-1012194US

PATIENT
  Age: 69 Year
  Sex: Female

DRUGS (1)
  1. OZURDEX [Suspect]
     Indication: RETINAL VEIN OCCLUSION
     Dosage: 0.7 MG, SINGLE
     Route: 031
     Dates: start: 20100819, end: 20100819

REACTIONS (1)
  - ENDOPHTHALMITIS [None]
